FAERS Safety Report 14957870 (Version 1)
Quarter: 2018Q2

REPORT INFORMATION
  Report Type: Spontaneous
  Country: US (occurrence: US)
  Receive Date: 20180531
  Receipt Date: 20180531
  Transmission Date: 20180711
  Serious: Yes (Hospitalization)
  Sender: FDA-Public Use
  Company Number: US-ABBVIE-18K-163-2370844-00

PATIENT
  Sex: Female

DRUGS (2)
  1. HUMIRA [Suspect]
     Active Substance: ADALIMUMAB
     Indication: MATERNAL EXPOSURE TIMING UNSPECIFIED
     Route: 063
  2. SYNTHROID [Suspect]
     Active Substance: LEVOTHYROXINE SODIUM
     Indication: MATERNAL EXPOSURE TIMING UNSPECIFIED
     Route: 063

REACTIONS (7)
  - Foetal exposure during pregnancy [Unknown]
  - Anaemia [Recovering/Resolving]
  - Haematochezia [Recovered/Resolved]
  - Premature baby [Unknown]
  - Exposure via breast milk [Unknown]
  - Dyspnoea [Recovered/Resolved]
  - Gastrointestinal tube insertion [Recovered/Resolved]

NARRATIVE: CASE EVENT DATE: 20180222
